FAERS Safety Report 18702333 (Version 3)
Quarter: 2021Q1

REPORT INFORMATION
  Report Type: Spontaneous
  Country: US (occurrence: US)
  Receive Date: 20210105
  Receipt Date: 20210315
  Transmission Date: 20210419
  Serious: No
  Sender: FDA-Public Use
  Company Number: US-PFIZER INC-2020519977

PATIENT
  Age: 61 Year
  Sex: Female

DRUGS (4)
  1. IBRANCE [Suspect]
     Active Substance: PALBOCICLIB
     Dosage: 125 MG, UNK
     Dates: start: 20201210, end: 20210102
  2. IBRANCE [Suspect]
     Active Substance: PALBOCICLIB
     Dosage: 125 UNK
     Dates: start: 20201230
  3. IBRANCE [Suspect]
     Active Substance: PALBOCICLIB
     Dosage: 125 MG, UNK
     Dates: start: 20201208, end: 20210102
  4. IBRANCE [Suspect]
     Active Substance: PALBOCICLIB
     Dosage: 125 MG, UNK
     Dates: start: 20201224, end: 20210102

REACTIONS (6)
  - Irritable bowel syndrome [Not Recovered/Not Resolved]
  - Flatulence [Not Recovered/Not Resolved]
  - Blood count abnormal [Unknown]
  - Hepatic enzyme abnormal [Unknown]
  - Dizziness [Unknown]
  - Pyrexia [Unknown]

NARRATIVE: CASE EVENT DATE: 202012
